FAERS Safety Report 12262037 (Version 9)
Quarter: 2020Q3

REPORT INFORMATION
  Report Type: Report from Study
  Country: US (occurrence: US)
  Receive Date: 20160413
  Receipt Date: 20200916
  Transmission Date: 20201102
  Serious: Yes (Other)
  Sender: FDA-Public Use
  Company Number: US-AMGEN-USASL2016042921

PATIENT
  Age: 76 Year
  Sex: Male

DRUGS (14)
  1. NPLATE [Suspect]
     Active Substance: ROMIPLOSTIM
     Dosage: 150 MCG, UNK
     Route: 065
  2. NPLATE [Suspect]
     Active Substance: ROMIPLOSTIM
     Dosage: 700 MUG, QWK
     Route: 065
  3. NPLATE [Suspect]
     Active Substance: ROMIPLOSTIM
     Dosage: 230 MCG, UNK
     Route: 065
  4. NPLATE [Suspect]
     Active Substance: ROMIPLOSTIM
     Dosage: 310 MCG, QWK
     Route: 065
     Dates: start: 20160510
  5. FLOMAX [Suspect]
     Active Substance: TAMSULOSIN HYDROCHLORIDE
     Indication: PRODUCT USED FOR UNKNOWN INDICATION
     Dosage: UNK
     Route: 065
  6. NPLATE [Suspect]
     Active Substance: ROMIPLOSTIM
     Indication: IMMUNE THROMBOCYTOPENIA
     Dosage: 80 MCG, QWK
     Route: 065
     Dates: start: 20160405
  7. FINASTERIDE. [Concomitant]
     Active Substance: FINASTERIDE
     Dosage: 5 MG, QD
     Route: 065
  8. IMMUNOGLOBULIN (IVIG) [Suspect]
     Active Substance: HUMAN IMMUNOGLOBULIN G
     Indication: PLATELET COUNT ABNORMAL
     Dosage: UNK
     Route: 065
     Dates: start: 201612
  9. POTASSIUM CHLORIDE. [Concomitant]
     Active Substance: POTASSIUM CHLORIDE
     Dosage: 10 MEQ, BID
     Route: 065
  10. NPLATE [Suspect]
     Active Substance: ROMIPLOSTIM
     Dosage: 620 MUG, QWK
     Route: 065
  11. NPLATE [Suspect]
     Active Substance: ROMIPLOSTIM
     Dosage: 470 MCG, QWK
     Route: 065
     Dates: start: 20160607
  12. NPLATE [Suspect]
     Active Substance: ROMIPLOSTIM
     Dosage: 540 MCG, QWK
     Route: 065
     Dates: start: 20160726
  13. NPLATE [Suspect]
     Active Substance: ROMIPLOSTIM
     Dosage: 390 MCG, QWK
     Route: 065
     Dates: start: 20160524
  14. NPLATE [Suspect]
     Active Substance: ROMIPLOSTIM
     Dosage: 540 MCG, QWK
     Route: 065
     Dates: start: 201604

REACTIONS (49)
  - Gait disturbance [Unknown]
  - Laboratory test abnormal [Unknown]
  - Erythema [Unknown]
  - Asthenia [Recovered/Resolved]
  - Fatigue [Recovering/Resolving]
  - Arthralgia [Unknown]
  - Joint noise [Unknown]
  - Mobility decreased [Unknown]
  - Meniscus injury [Unknown]
  - Throat irritation [Recovered/Resolved]
  - Feeling abnormal [Unknown]
  - Loss of personal independence in daily activities [Unknown]
  - Chondropathy [Unknown]
  - Low density lipoprotein abnormal [Unknown]
  - Neck pain [Unknown]
  - Haemorrhoidal haemorrhage [Unknown]
  - Thrombosis [Unknown]
  - Hyperhidrosis [Unknown]
  - Headache [Recovering/Resolving]
  - Petechiae [Unknown]
  - Platelet count abnormal [Recovering/Resolving]
  - Platelet count decreased [Unknown]
  - Epistaxis [Unknown]
  - Hot flush [Not Recovered/Not Resolved]
  - Arthritis [Not Recovered/Not Resolved]
  - Adverse event [Unknown]
  - Nasopharyngitis [Recovering/Resolving]
  - Chills [Unknown]
  - Back pain [Unknown]
  - Dizziness [Unknown]
  - Blood blister [Recovering/Resolving]
  - Platelet disorder [Unknown]
  - Sleep disorder [Unknown]
  - Oral blood blister [Unknown]
  - Speech disorder [Not Recovered/Not Resolved]
  - Hypoaesthesia [Not Recovered/Not Resolved]
  - Vertigo [Unknown]
  - Pain in extremity [Not Recovered/Not Resolved]
  - Somnolence [Unknown]
  - Adverse reaction [Unknown]
  - Cerebral artery thrombosis [Unknown]
  - Carpal tunnel syndrome [Unknown]
  - Myalgia [Unknown]
  - Swelling [Unknown]
  - Pain [Recovering/Resolving]
  - Nasal congestion [Unknown]
  - Upper respiratory tract infection [Recovered/Resolved]
  - Aspartate aminotransferase abnormal [Unknown]
  - Memory impairment [Unknown]

NARRATIVE: CASE EVENT DATE: 201604
